FAERS Safety Report 9928008 (Version 1)
Quarter: 2014Q1

REPORT INFORMATION
  Report Type: Spontaneous
  Country: US (occurrence: US)
  Receive Date: 20140227
  Receipt Date: 20140227
  Transmission Date: 20141002
  Serious: No
  Sender: FDA-Public Use
  Company Number: US-PFIZER INC-2014052559

PATIENT
  Age: 60 Year
  Sex: Female

DRUGS (3)
  1. ESTRING [Suspect]
     Indication: HORMONE REPLACEMENT THERAPY
     Dosage: UNK
     Route: 067
     Dates: start: 20110611
  2. CYTOMEL [Concomitant]
     Indication: THYROID DISORDER
     Dosage: 5 UG, 1X/DAY
  3. VIVELLE [Concomitant]
     Indication: HORMONE REPLACEMENT THERAPY
     Dosage: 0.2 MG(0.1MG X 2 PATCHES), 2X/WEEK
     Dates: start: 2010

REACTIONS (2)
  - Drug ineffective [Unknown]
  - Product quality issue [Unknown]
